FAERS Safety Report 6899763-5 (Version None)
Quarter: 2010Q3

REPORT INFORMATION
  Report Type: 
  Country: None (occurrence: None)
  Receive Date: 20100708
  Receipt Date: 20091023
  Transmission Date: 20110219
  Serious: Yes (Other)
  Sender: FDA-Public Use
  Company Number: 2009245898

PATIENT
  Age: 46 Year
  Sex: Female
  Weight: 50.3 kg

DRUGS (1)
  1. CHANTIX [Suspect]
     Indication: SMOKING CESSATION THERAPY
     Dosage: 1 MG, 2X/DAY
     Dates: start: 20090412, end: 20090601

REACTIONS (13)
  - AGITATION [None]
  - ARTHRALGIA [None]
  - DEPRESSION [None]
  - FEELING ABNORMAL [None]
  - HYPERTHYROIDISM [None]
  - INSOMNIA [None]
  - IRRITABILITY [None]
  - MUSCLE TWITCHING [None]
  - PAIN [None]
  - PERSONALITY CHANGE [None]
  - SUICIDAL IDEATION [None]
  - TREMOR [None]
  - URINARY TRACT INFECTION [None]
